FAERS Safety Report 4638855-8 (Version None)
Quarter: 2005Q2

REPORT INFORMATION
  Report Type: 
  Country: None (occurrence: None)
  Receive Date: 20050415
  Receipt Date: 20050415
  Transmission Date: 20051028
  Serious: Yes (Other)
  Sender: FDA-Public Use
  Company Number: None

PATIENT
  Sex: Female

DRUGS (1)
  1. SINEMET [Suspect]
     Dosage: PO 3 X DAILY
     Route: 048

REACTIONS (2)
  - DYSPNOEA [None]
  - RASH [None]
